FAERS Safety Report 9762650 (Version 1)
Quarter: 2013Q4

REPORT INFORMATION
  Report Type: Spontaneous
  Country: US (occurrence: US)
  Receive Date: 20131216
  Receipt Date: 20131216
  Transmission Date: 20140711
  Serious: No
  Sender: FDA-Public Use
  Company Number: US-BIOGENIDEC-2013BI103036

PATIENT
  Sex: Male

DRUGS (14)
  1. TECFIDERA [Suspect]
     Indication: MULTIPLE SCLEROSIS
     Route: 048
     Dates: start: 20130916
  2. ABILIFY [Concomitant]
  3. ADVAIR [Concomitant]
  4. ALBUTEROL SULFATE [Concomitant]
  5. ANTACID [Concomitant]
  6. CITALOPRAM [Concomitant]
  7. HYDROBROMIDE [Concomitant]
  8. DOXEPIN HCL [Concomitant]
  9. LAMOTRIGINE [Concomitant]
  10. MILK OF MAGNESIA [Concomitant]
  11. POLYETHYLENE GLYCOL [Concomitant]
  12. PRAVASTATIN SODIUM [Concomitant]
  13. PRILOSEC [Concomitant]
  14. DOCUSATE [Concomitant]

REACTIONS (1)
  - Flushing [Unknown]
